FAERS Safety Report 7129136-1 (Version None)
Quarter: 2010Q4

REPORT INFORMATION
  Report Type: 
  Country: None (occurrence: None)
  Receive Date: 20101130
  Receipt Date: 20101126
  Transmission Date: 20110411
  Serious: Yes (Other)
  Sender: FDA-Public Use
  Company Number: CHPA2010GB18250

PATIENT
  Age: 43 Year
  Sex: Female

DRUGS (1)
  1. NICOTINELL TTS (NCH) [Suspect]
     Dosage: UNK, UNK
     Route: 062

REACTIONS (4)
  - BLISTER [None]
  - CRYING [None]
  - PAIN [None]
  - THERMAL BURN [None]
